FAERS Safety Report 9917021 (Version 2)
Quarter: 2014Q2

REPORT INFORMATION
  Report Type: Spontaneous
  Country: US (occurrence: US)
  Receive Date: 20140221
  Receipt Date: 20140509
  Transmission Date: 20141212
  Serious: Yes (Hospitalization)
  Sender: FDA-Public Use
  Company Number: US-GLAXOSMITHKLINE-A1061183A

PATIENT
  Age: 88 Year
  Sex: Male

DRUGS (10)
  1. AVODART [Suspect]
     Indication: PROSTATIC DISORDER
     Dosage: .5MG PER DAY
     Route: 048
  2. HYDRALAZINE [Concomitant]
  3. POTASSIUM [Concomitant]
  4. TRILEPTAL [Concomitant]
  5. VALSARTAN [Concomitant]
  6. FLOMAX [Concomitant]
  7. AMLODIPINE [Concomitant]
  8. LASIX [Concomitant]
  9. IRON [Concomitant]
  10. VITAMIN E [Concomitant]

REACTIONS (4)
  - Lung disorder [Recovering/Resolving]
  - Cardiac disorder [Recovering/Resolving]
  - Nephropathy [Recovering/Resolving]
  - Drug administration error [Unknown]
